FAERS Safety Report 19865109 (Version 1)
Quarter: 2021Q3

REPORT INFORMATION
  Report Type: Spontaneous
  Country: US (occurrence: US)
  Receive Date: 20210921
  Receipt Date: 20210921
  Transmission Date: 20211014
  Serious: Yes (Other)
  Sender: FDA-Public Use
  Company Number: None

PATIENT
  Age: 14 Year
  Sex: Female
  Weight: 51.3 kg

DRUGS (2)
  1. SUMATRIPTAN TABLET, USP 50MG [Suspect]
     Active Substance: SUMATRIPTAN
     Indication: MIGRAINE
     Dosage: ?          QUANTITY:1 TABLET(S);?
     Route: 048
     Dates: start: 20210628, end: 20210919
  2. QUDEXY XR [Concomitant]
     Active Substance: TOPIRAMATE

REACTIONS (7)
  - Pallor [None]
  - Dysphagia [None]
  - Cold sweat [None]
  - Chest discomfort [None]
  - Throat tightness [None]
  - Dyspnoea [None]
  - Anaphylactic reaction [None]

NARRATIVE: CASE EVENT DATE: 20210919
